FAERS Safety Report 19063129 (Version 1)
Quarter: 2021Q1

REPORT INFORMATION
  Report Type: Spontaneous
  Country: US (occurrence: US)
  Receive Date: 20210326
  Receipt Date: 20210326
  Transmission Date: 20210420
  Serious: Yes (Death, Hospitalization, Other)
  Sender: FDA-Public Use
  Company Number: US-GLAXOSMITHKLINE-US2021068840

PATIENT
  Sex: Male

DRUGS (1)
  1. ANORO ELLIPTA [Suspect]
     Active Substance: UMECLIDINIUM BROMIDE\VILANTEROL TRIFENATATE
     Indication: PLEURAL EFFUSION
     Dosage: 1 PUFF(S), QD
     Route: 055
     Dates: start: 202008

REACTIONS (4)
  - Cardiac failure [Fatal]
  - Product use in unapproved indication [Unknown]
  - Respiratory failure [Fatal]
  - Dyspnoea [Unknown]

NARRATIVE: CASE EVENT DATE: 2020
